FAERS Safety Report 4526195-7 (Version None)
Quarter: 2004Q4

REPORT INFORMATION
  Report Type: 
  Country: None (occurrence: None)
  Receive Date: 20041210
  Receipt Date: 20041129
  Transmission Date: 20050328
  Serious: Yes (Death, Hospitalization)
  Sender: FDA-Public Use
  Company Number: S04-USA-07696-01

PATIENT
  Age: 81 Year
  Sex: Female

DRUGS (8)
  1. NAMENDA [Suspect]
     Indication: DEMENTIA ALZHEIMER'S TYPE
     Dosage: 5 MG BID PO
     Route: 048
     Dates: start: 20040710, end: 20040716
  2. NAMENDA [Suspect]
     Indication: DEMENTIA ALZHEIMER'S TYPE
     Dosage: 15 MG QD PO
     Route: 048
     Dates: start: 20040717, end: 20040719
  3. NAMENDA [Suspect]
     Indication: DEMENTIA ALZHEIMER'S TYPE
     Dosage: 5 MG BID PO
     Route: 048
     Dates: start: 20040730, end: 20040803
  4. NAMENDA [Suspect]
     Indication: DEMENTIA ALZHEIMER'S TYPE
     Dosage: 5 MG QD PO
     Route: 048
     Dates: start: 20040703, end: 20040709
  5. NAMENDA [Suspect]
     Indication: DEMENTIA ALZHEIMER'S TYPE
     Dosage: 5 MG QD PO
     Route: 048
     Dates: start: 20040723, end: 20040729
  6. MAXZIDE [Concomitant]
  7. LANOXIN [Concomitant]
  8. PREMARIN [Concomitant]

REACTIONS (8)
  - CHOLECYSTITIS [None]
  - CLOSTRIDIAL INFECTION [None]
  - DYSPNOEA [None]
  - LETHARGY [None]
  - MENTAL STATUS CHANGES [None]
  - SEPSIS [None]
  - UMBILICAL HERNIA [None]
  - URINARY TRACT INFECTION [None]
